FAERS Safety Report 9330591 (Version 2)
Quarter: 2013Q4

REPORT INFORMATION
  Report Type: Spontaneous
  Country: US (occurrence: US)
  Receive Date: 20130605
  Receipt Date: 20131108
  Transmission Date: 20140711
  Serious: Yes (Hospitalization)
  Sender: FDA-Public Use
  Company Number: US-B.I. PHARMACEUTICALS,INC./RIDGEFIELD-2013-BI-15451BP

PATIENT
  Sex: Female
  Weight: 94.8 kg

DRUGS (10)
  1. PRADAXA [Suspect]
     Indication: ANTICOAGULANT THERAPY
     Dosage: 300 MG
     Dates: start: 20111026, end: 20120726
  2. DILTIAZEM [Concomitant]
     Dosage: 180 MG
     Route: 048
  3. FUROSEMIDE [Concomitant]
     Dosage: 40 MG
     Route: 048
  4. DYAZIDE [Concomitant]
     Route: 048
  5. ASPIRIN [Concomitant]
     Route: 048
  6. METFORMIN [Concomitant]
     Dosage: 1000 MG
     Route: 048
  7. LIPITOR [Concomitant]
     Dosage: 10 MG
     Route: 048
  8. VASOTEC [Concomitant]
     Dosage: 10 MG
     Route: 048
  9. COREG [Concomitant]
     Dosage: 50 MG
     Route: 048
  10. VITAMIN B12 [Concomitant]
     Dosage: 1000 MCG
     Route: 048

REACTIONS (2)
  - Gastrointestinal haemorrhage [Unknown]
  - Anaemia [Unknown]
